FAERS Safety Report 4873719-6 (Version None)
Quarter: 2006Q1

REPORT INFORMATION
  Report Type: 
  Country: None (occurrence: None)
  Receive Date: 20060104
  Receipt Date: 20060104
  Transmission Date: 20060701
  Serious: Yes (Life-Threatening, Hospitalization)
  Sender: FDA-Public Use
  Company Number: None

PATIENT
  Age: 30 Year
  Sex: Male
  Weight: 103.4 kg

DRUGS (3)
  1. SOMA [Suspect]
     Indication: DRUG ABUSER
     Dosage: 10-15 TABS X1
     Dates: start: 20050324, end: 20050324
  2. METHADONE [Concomitant]
  3. VALIUM [Concomitant]

REACTIONS (2)
  - INTENTIONAL OVERDOSE [None]
  - LOSS OF CONSCIOUSNESS [None]
